FAERS Safety Report 9046158 (Version 2)
Quarter: 2013Q2

REPORT INFORMATION
  Report Type: Spontaneous
  Country: US (occurrence: US)
  Receive Date: 20130201
  Receipt Date: 20130506
  Transmission Date: 20140414
  Serious: Yes (Hospitalization)
  Sender: FDA-Public Use
  Company Number: PHEH2013US002614

PATIENT
  Sex: Female

DRUGS (8)
  1. GILENYA [Suspect]
     Dosage: 0.5 MG, QD
     Route: 048
  2. PREMARIN [Concomitant]
  3. IMIPRA [Concomitant]
  4. EFFEXOR [Concomitant]
  5. AMBIEN [Concomitant]
  6. MAGNESIUM [Concomitant]
  7. POTASSIUM [Concomitant]
  8. OXYBUTYNIN [Concomitant]

REACTIONS (4)
  - Cerebral haemorrhage [Unknown]
  - Subdural haematoma [Unknown]
  - Fractured skull depressed [Unknown]
  - Fall [Unknown]
